FAERS Safety Report 7606595-9 (Version None)
Quarter: 2011Q3

REPORT INFORMATION
  Report Type: 
  Country: None (occurrence: None)
  Receive Date: 20110713
  Receipt Date: 20110630
  Transmission Date: 20111222
  Serious: Yes (Hospitalization, Other)
  Sender: FDA-Public Use
  Company Number: PHHY2011JP46232

PATIENT
  Sex: Female
  Weight: 49 kg

DRUGS (7)
  1. MAGNESIUM SULFATE [Concomitant]
     Indication: CONSTIPATION
     Dosage: 990 MG, UNK
     Route: 048
     Dates: start: 19971201, end: 20110523
  2. TRICHLORMETHIAZIDE [Concomitant]
     Indication: HYPERTENSION
     Dosage: 2 MG, UNK
     Route: 048
     Dates: start: 19971201, end: 20110523
  3. WARFARIN SODIUM [Concomitant]
     Indication: ATRIAL FIBRILLATION
     Dosage: 2 MG, UNK
     Route: 048
     Dates: start: 19971201, end: 20110523
  4. CANDESARTAN CILEXETIL [Concomitant]
     Indication: HYPERTENSION
     Dosage: 8 MG, UNK
     Route: 048
     Dates: start: 20110412, end: 20110523
  5. LASIX [Concomitant]
     Indication: HYPERTENSION
     Dosage: 40 MG, UNK
     Route: 048
     Dates: start: 19971201, end: 20110523
  6. RASILEZ [Suspect]
     Indication: HYPERTENSION
     Dosage: 150 MG, UNK
     Route: 048
     Dates: start: 20110510, end: 20110523
  7. ALDACTONE [Concomitant]
     Indication: HYPERTENSION
     Dosage: 25 MG, UNK
     Route: 048
     Dates: start: 19971201, end: 20110523

REACTIONS (8)
  - ALTERED STATE OF CONSCIOUSNESS [None]
  - HYPERKALAEMIA [None]
  - HEPATIC FUNCTION ABNORMAL [None]
  - HEART RATE DECREASED [None]
  - HEPATIC CONGESTION [None]
  - RENAL IMPAIRMENT [None]
  - BLOOD CREATININE INCREASED [None]
  - VENOUS PRESSURE INCREASED [None]
